FAERS Safety Report 4790111-3 (Version None)
Quarter: 2005Q3

REPORT INFORMATION
  Report Type: 
  Country: None (occurrence: None)
  Receive Date: 20050914
  Receipt Date: 20041216
  Transmission Date: 20060218
  Serious: Yes (Death, Hospitalization)
  Sender: FDA-Public Use
  Company Number: 163-20785-04120475

PATIENT
  Age: 57 Year
  Sex: Male

DRUGS (5)
  1. THALOMID [Suspect]
     Indication: LUNG CANCER METASTATIC
     Dosage: 600 MG, QD, ORAL
     Route: 048
     Dates: start: 20041118, end: 20041210
  2. THALOMID [Suspect]
     Indication: METASTASES TO CENTRAL NERVOUS SYSTEM
     Dosage: 600 MG, QD, ORAL
     Route: 048
     Dates: start: 20041118, end: 20041210
  3. TEMODAR [Suspect]
     Indication: LUNG CANCER METASTATIC
  4. TEMODAR [Suspect]
     Indication: METASTASES TO CENTRAL NERVOUS SYSTEM
  5. DILANTIN [Concomitant]

REACTIONS (9)
  - CONSTIPATION [None]
  - COUGH [None]
  - DEATH [None]
  - DECREASED APPETITE [None]
  - DYSPNOEA [None]
  - NEUTROPENIA [None]
  - RASH [None]
  - THROMBOCYTOPENIA [None]
  - WEIGHT DECREASED [None]
